FAERS Safety Report 7502990-7 (Version None)
Quarter: 2011Q2

REPORT INFORMATION
  Report Type: 
  Country: None (occurrence: None)
  Receive Date: 20110525
  Receipt Date: 20100922
  Transmission Date: 20111010
  Serious: No
  Sender: FDA-Public Use
  Company Number: US-NOVEN-ALL1-2010-05010

PATIENT
  Sex: Male
  Weight: 18.594 kg

DRUGS (3)
  1. BENADRYL [Concomitant]
     Dosage: UNK, AS REQ'D
     Route: 048
  2. DAYTRANA [Suspect]
     Dosage: 15 MG, 1X/DAY:QD
     Route: 062
     Dates: start: 20091201
  3. CLARITIN                           /00413701/ [Concomitant]
     Dosage: UNK, AS REQ'D
     Route: 048

REACTIONS (2)
  - INCORRECT DRUG ADMINISTRATION DURATION [None]
  - NO ADVERSE EVENT [None]
